FAERS Safety Report 13384763 (Version 1)
Quarter: 2017Q1

REPORT INFORMATION
  Report Type: Spontaneous
  Country: US (occurrence: US)
  Receive Date: 20170329
  Receipt Date: 20170329
  Transmission Date: 20170429
  Serious: No
  Sender: FDA-Public Use
  Company Number: US-PRINSTON PHARMACEUTICAL INC.-2017PRN00020

PATIENT
  Age: 61 Year
  Sex: Female
  Weight: 90.7 kg

DRUGS (4)
  1. BUPROPION HYDROCHLORIDE. [Suspect]
     Active Substance: BUPROPION HYDROCHLORIDE
     Indication: DEPRESSION
     Dosage: 1 TABLETS, 2X/DAY
     Route: 048
     Dates: start: 201610, end: 2016
  2. BUPROPION HYDROCHLORIDE. [Suspect]
     Active Substance: BUPROPION HYDROCHLORIDE
     Dosage: UNK
     Dates: start: 201701, end: 201701
  3. BUPROPION HYDROCHLORIDE (MANUFACTURED BY SANDOZ) [Concomitant]
     Indication: DEPRESSION
     Dosage: UNK
     Dates: start: 2016, end: 20170101
  4. UNSPECIFIED CONCOMITANT PRODUCTS [Concomitant]

REACTIONS (5)
  - Asthenia [Unknown]
  - Depression [Unknown]
  - Nervousness [Recovering/Resolving]
  - Product substitution issue [Unknown]
  - Nausea [Recovering/Resolving]

NARRATIVE: CASE EVENT DATE: 2016
